FAERS Safety Report 5799106-4 (Version None)
Quarter: 2008Q3

REPORT INFORMATION
  Report Type: 
  Country: None (occurrence: None)
  Receive Date: 20080702
  Receipt Date: 20080627
  Transmission Date: 20090109
  Serious: Yes (Death)
  Sender: FDA-Public Use
  Company Number: BS-BOEHRINGER INGELHEIM GMBH, GERMANY-2008-CN-00291CN

PATIENT
  Sex: Male

DRUGS (1)
  1. SPIRIVA [Suspect]

REACTIONS (1)
  - LUNG NEOPLASM MALIGNANT [None]
